FAERS Safety Report 21807228 (Version 1)
Quarter: 2023Q1

REPORT INFORMATION
  Report Type: Spontaneous
  Country: US (occurrence: US)
  Receive Date: 20230102
  Receipt Date: 20230102
  Transmission Date: 20230417
  Serious: Yes (Other)
  Sender: FDA-Public Use
  Company Number: US-JNJFOC-20221255659

PATIENT
  Age: 87 Year
  Sex: Male
  Weight: 79.450 kg

DRUGS (4)
  1. ZYTIGA [Suspect]
     Active Substance: ABIRATERONE ACETATE
     Indication: Prostate cancer stage IV
     Dosage: TOOK 4 PILLS
     Route: 048
     Dates: start: 20211007
  2. PREDNISONE [Suspect]
     Active Substance: PREDNISONE
     Indication: Product used for unknown indication
     Dosage: ONE IN THE MORNING AND ONE IN EVENING
     Route: 065
  3. PREDNISONE [Suspect]
     Active Substance: PREDNISONE
     Route: 065
     Dates: end: 20211230
  4. PREDNISONE [Suspect]
     Active Substance: PREDNISONE
     Dosage: HALF PILL
     Route: 065
     Dates: start: 20211231, end: 20220106

REACTIONS (5)
  - Prostate cancer metastatic [Unknown]
  - Fluid retention [Unknown]
  - Appetite disorder [Unknown]
  - Gait disturbance [Unknown]
  - Dizziness [Unknown]
